FAERS Safety Report 23626044 (Version 1)
Quarter: 2024Q1

REPORT INFORMATION
  Report Type: Spontaneous
  Country: US (occurrence: US)
  Receive Date: 20240313
  Receipt Date: 20240313
  Transmission Date: 20240410
  Serious: Yes (Other)
  Sender: FDA-Public Use
  Company Number: US-UCBSA-2024011619

PATIENT
  Age: 21 Year
  Sex: Female

DRUGS (1)
  1. NAYZILAM [Suspect]
     Active Substance: MIDAZOLAM
     Indication: Seizure cluster
     Dosage: 1 NASAL SPRAY UNIT IN EACH NOSTRIL AND MAY REPEAT IN 10 MINUTES
     Route: 045

REACTIONS (3)
  - Fall [Unknown]
  - Craniofacial fracture [Unknown]
  - Seizure [Recovered/Resolved]

NARRATIVE: CASE EVENT DATE: 20240305
